FAERS Safety Report 9621229 (Version 1)
Quarter: 2013Q4

REPORT INFORMATION
  Report Type: Report from Study
  Country: CH (occurrence: CH)
  Receive Date: 20131015
  Receipt Date: 20131015
  Transmission Date: 20140711
  Serious: Yes (Hospitalization)
  Sender: FDA-Public Use
  Company Number: PHHO2013CH013321

PATIENT
  Sex: 0

DRUGS (7)
  1. CGS 20267 [Suspect]
     Indication: BREAST CANCER
     Dosage: 2.5 MG, QD
     Route: 048
     Dates: start: 20090525
  2. ASPIRIN CARDIO [Concomitant]
     Dosage: 100 MG, UNK
     Route: 048
  3. EFFEXOR [Concomitant]
     Dosage: 75 MG, UNK
     Route: 048
  4. SIRDALUD [Concomitant]
     Dosage: 1
     Route: 048
     Dates: start: 201103
  5. SERETIDE [Concomitant]
     Dosage: 750 MG, UNK
     Dates: start: 201210
  6. SPIRIVA [Concomitant]
     Dosage: 78 UG, UNK
     Dates: start: 201210
  7. DIOVAN [Concomitant]
     Dosage: 80 MG, UNK
     Route: 048
     Dates: start: 201003

REACTIONS (1)
  - Chronic obstructive pulmonary disease [Unknown]
